FAERS Safety Report 6138413-2 (Version None)
Quarter: 2009Q1

REPORT INFORMATION
  Report Type: 
  Country: None (occurrence: None)
  Receive Date: 20090331
  Receipt Date: 20090330
  Transmission Date: 20090719
  Serious: Yes (Hospitalization, Other)
  Sender: FDA-Public Use
  Company Number: PHHO2007US15459

PATIENT
  Sex: Female
  Weight: 62.7 kg

DRUGS (11)
  1. CIBADREX T29368+ [Suspect]
     Indication: HYPERTENSION
     Dosage: LEVEL 1
     Route: 048
     Dates: start: 20040104
  2. CIBADREX T29368+ [Suspect]
     Dosage: LEVEL 3
     Route: 048
  3. ASPIRIN [Concomitant]
     Indication: PROPHYLAXIS
  4. CALCIUM [Concomitant]
     Indication: MINERAL SUPPLEMENTATION
  5. GLIPIZIDE [Concomitant]
     Indication: DIABETES MELLITUS
  6. LIPITOR [Concomitant]
     Indication: HYPERLIPIDAEMIA
  7. METFORMIN HCL [Concomitant]
     Indication: DIABETES MELLITUS
  8. MULTI-VIT [Concomitant]
     Indication: MEDICAL DIET
  9. NASACORT [Concomitant]
     Indication: RHINITIS ALLERGIC
  10. TEMAZEPAM [Concomitant]
     Indication: INSOMNIA
  11. ASCORBIC ACID [Concomitant]
     Indication: MEDICAL DIET

REACTIONS (14)
  - ABDOMINAL PAIN UPPER [None]
  - ADRENAL MASS [None]
  - ANEURYSM [None]
  - AORTIC ANEURYSM [None]
  - BACK PAIN [None]
  - BLOOD GLUCOSE INCREASED [None]
  - COLITIS [None]
  - DECREASED APPETITE [None]
  - FATIGUE [None]
  - LOCALISED OEDEMA [None]
  - NAUSEA [None]
  - PULMONARY MASS [None]
  - RENAL NEOPLASM [None]
  - URINARY TRACT INFECTION [None]
